FAERS Safety Report 10303848 (Version 2)
Quarter: 2014Q3

REPORT INFORMATION
  Report Type: Spontaneous
  Country: US (occurrence: US)
  Receive Date: 20140714
  Receipt Date: 20140714
  Transmission Date: 20150326
  Serious: No
  Sender: FDA-Public Use
  Company Number: US-GILEAD-2013-0083598

PATIENT
  Sex: Female

DRUGS (5)
  1. REVATIO [Concomitant]
     Active Substance: SILDENAFIL CITRATE
  2. COUMADIN [Concomitant]
     Active Substance: WARFARIN SODIUM
  3. LETAIRIS [Suspect]
     Active Substance: AMBRISENTAN
     Indication: PRODUCT USED FOR UNKNOWN INDICATION
     Dosage: 10 MG, QD
     Route: 048
     Dates: start: 20130623
  4. SILDENAFIL [Concomitant]
     Active Substance: SILDENAFIL
  5. TYVASO [Concomitant]
     Active Substance: TREPROSTINIL

REACTIONS (5)
  - Tension headache [Unknown]
  - Cough [Unknown]
  - Throat irritation [Unknown]
  - Dyspnoea [Unknown]
  - Oropharyngeal pain [Unknown]
